FAERS Safety Report 18335019 (Version 1)
Quarter: 2020Q4

REPORT INFORMATION
  Report Type: Spontaneous
  Country: JP (occurrence: JP)
  Receive Date: 20201001
  Receipt Date: 20201001
  Transmission Date: 20210113
  Serious: Yes (Other)
  Sender: FDA-Public Use
  Company Number: JP-LUPIN PHARMACEUTICALS INC.-2020-06625

PATIENT
  Age: 67 Year
  Sex: Male

DRUGS (1)
  1. METHYLPREDNISOLONE. [Suspect]
     Active Substance: METHYLPREDNISOLONE
     Indication: GASTROENTERITIS EOSINOPHILIC
     Dosage: 25 MILLIGRAM, QD
     Route: 048

REACTIONS (3)
  - Gastrointestinal perforation [Unknown]
  - Small intestinal perforation [Unknown]
  - Intestinal ulcer [Unknown]
